FAERS Safety Report 13008173 (Version 1)
Quarter: 2016Q4

REPORT INFORMATION
  Report Type: Report from Study
  Country: None (occurrence: BR)
  Receive Date: 20161208
  Receipt Date: 20161208
  Transmission Date: 20170207
  Serious: Yes (Hospitalization, Other)
  Sender: FDA-Public Use
  Company Number: BR-ABBVIE-16K-020-1795625-00

PATIENT
  Sex: Male
  Weight: 83 kg

DRUGS (1)
  1. HUMIRA [Suspect]
     Active Substance: ADALIMUMAB
     Indication: CROHN^S DISEASE
     Route: 058
     Dates: start: 20140919

REACTIONS (6)
  - Hypoacusis [Unknown]
  - Myocardial infarction [Unknown]
  - Infarction [Recovered/Resolved]
  - Pancreatitis [Recovered/Resolved]
  - Gastrointestinal infection [Recovered/Resolved]
  - Cataract [Unknown]
